FAERS Safety Report 7383858-6 (Version None)
Quarter: 2011Q1

REPORT INFORMATION
  Report Type: 
  Country: None (occurrence: None)
  Receive Date: 20110323
  Receipt Date: 20110314
  Transmission Date: 20110831
  Serious: Yes (Death, Hospitalization, Other)
  Sender: FDA-Public Use
  Company Number: 2010152123

PATIENT
  Age: 87 Year
  Sex: Female
  Weight: 50.8 kg

DRUGS (17)
  1. WARFARIN SODIUM [Suspect]
     Indication: DEEP VEIN THROMBOSIS
     Dates: start: 20100831, end: 20100919
  2. WARFARIN SODIUM [Suspect]
     Indication: DEEP VEIN THROMBOSIS
     Dates: start: 20101005, end: 20101007
  3. WARFARIN SODIUM [Suspect]
     Indication: DEEP VEIN THROMBOSIS
     Dates: start: 20100923, end: 20100929
  4. ZOPICLONE (ZOPICLONE) [Concomitant]
  5. LEVOTHYROXINE (LEVOTHYROXINE) [Concomitant]
  6. IBUPROFEN [Suspect]
     Dosage: 600 MG, 3X/DAY
     Dates: start: 20080101, end: 20100919
  7. TRIMETHOPRIM [Suspect]
     Indication: URINARY TRACT INFECTION
     Dosage: 200 MG, 2X/DAY
     Dates: start: 20100918
  8. DIHYDROCODEINE COMPOUND [Concomitant]
  9. FRAGMIN [Suspect]
     Indication: DEEP VEIN THROMBOSIS
     Dosage: 10000 IU, 1X/DAY, SUBCUTANEOUS; 5000 IU, 1X/DAY
     Route: 058
     Dates: start: 20100807, end: 20100919
  10. FRAGMIN [Suspect]
     Indication: PROPHYLAXIS
     Dosage: 10000 IU, 1X/DAY, SUBCUTANEOUS; 5000 IU, 1X/DAY
     Route: 058
     Dates: start: 20100807, end: 20100919
  11. FRAGMIN [Suspect]
     Indication: DEEP VEIN THROMBOSIS
     Dosage: 10000 IU, 1X/DAY, SUBCUTANEOUS; 5000 IU, 1X/DAY
     Route: 058
     Dates: start: 20101005
  12. FRAGMIN [Suspect]
     Indication: PROPHYLAXIS
     Dosage: 10000 IU, 1X/DAY, SUBCUTANEOUS; 5000 IU, 1X/DAY
     Route: 058
     Dates: start: 20101005
  13. PARACETAMOL (PARACETAMOL) [Concomitant]
  14. FUROSEMIDE [Concomitant]
  15. FENTANYL [Concomitant]
  16. MOVICOL (MACROGOL, POTASSIUM CHLORIDE, SODIUM BICARABONATE, SODIUM CHL [Concomitant]
  17. OMEPRAZOLE [Concomitant]

REACTIONS (11)
  - INJECTION SITE HAEMORRHAGE [None]
  - LOWER RESPIRATORY TRACT INFECTION [None]
  - BLOOD PRESSURE DECREASED [None]
  - SOMNOLENCE [None]
  - ANTICOAGULATION DRUG LEVEL ABOVE THERAPEUTIC [None]
  - GENERAL PHYSICAL HEALTH DETERIORATION [None]
  - SUBCUTANEOUS HAEMATOMA [None]
  - DYSPHAGIA [None]
  - INTERNATIONAL NORMALISED RATIO INCREASED [None]
  - MALAISE [None]
  - URINARY TRACT INFECTION [None]
